FAERS Safety Report 11575663 (Version 2)
Quarter: 2015Q4

REPORT INFORMATION
  Report Type: Spontaneous
  Country: GB (occurrence: GB)
  Receive Date: 20150930
  Receipt Date: 20151118
  Transmission Date: 20160304
  Serious: Yes (Other)
  Sender: FDA-Public Use
  Company Number: GB-WATSON-2015-19078

PATIENT
  Age: 69 Year
  Sex: Female

DRUGS (3)
  1. WATER FOR INJECTIONS [Suspect]
     Active Substance: WATER
     Indication: CATARACT OPERATION
     Dosage: 0.2 ML, UNK
     Route: 047
     Dates: start: 20150520
  2. WATER FOR INJECTIONS [Suspect]
     Active Substance: WATER
     Indication: OFF LABEL USE
  3. CEFUROXIME SODIUM (UNKNOWN) [Suspect]
     Active Substance: CEFUROXIME SODIUM
     Indication: CATARACT OPERATION
     Dosage: 2 MG, UNK
     Route: 047
     Dates: start: 20150520

REACTIONS (1)
  - Corneal opacity [Unknown]

NARRATIVE: CASE EVENT DATE: 20150520
